FAERS Safety Report 17091142 (Version 2)
Quarter: 2019Q4

REPORT INFORMATION
  Report Type: Spontaneous
  Country: ES (occurrence: ES)
  Receive Date: 20191129
  Receipt Date: 20191213
  Transmission Date: 20200122
  Serious: Yes (Other)
  Sender: FDA-Public Use
  Company Number: ES-HETERO-HET2019ES01617

PATIENT
  Age: 78 Year
  Sex: Female

DRUGS (1)
  1. LEVOFLOXACIN. [Suspect]
     Active Substance: LEVOFLOXACIN
     Indication: ASTHMA
     Dosage: 500 MG
     Route: 048
     Dates: start: 20191015, end: 20191020

REACTIONS (2)
  - Tendon pain [Recovered/Resolved]
  - Product use in unapproved indication [Recovered/Resolved]

NARRATIVE: CASE EVENT DATE: 20191015
